FAERS Safety Report 9729321 (Version 3)
Quarter: 2014Q2

REPORT INFORMATION
  Report Type: Report from Study
  Country: DE (occurrence: DE)
  Receive Date: 20131204
  Receipt Date: 20140507
  Transmission Date: 20141212
  Serious: Yes (Hospitalization)
  Sender: FDA-Public Use
  Company Number: DE-ABBVIE-13P-062-1173660-00

PATIENT
  Age: 42 Year
  Sex: Male
  Weight: 61 kg

DRUGS (5)
  1. KALETRA [Suspect]
     Indication: HIV INFECTION
     Dosage: 200 MG / 50 MG
     Route: 048
     Dates: start: 20110720
  2. COMBIVIN 300/150 [Concomitant]
     Indication: PRODUCT USED FOR UNKNOWN INDICATION
     Dates: start: 20130809
  3. SULFADIAZIN [Concomitant]
     Indication: PRODUCT USED FOR UNKNOWN INDICATION
  4. DARAPRIM [Concomitant]
     Indication: PRODUCT USED FOR UNKNOWN INDICATION
  5. COTRIM [Concomitant]
     Indication: PRODUCT USED FOR UNKNOWN INDICATION
     Dates: start: 20130110

REACTIONS (2)
  - General physical condition abnormal [Recovered/Resolved]
  - Abdominal pain [Recovered/Resolved]
